FAERS Safety Report 16085044 (Version 1)
Quarter: 2019Q1

REPORT INFORMATION
  Report Type: Spontaneous
  Country: CA (occurrence: CA)
  Receive Date: 20190318
  Receipt Date: 20190318
  Transmission Date: 20190418
  Serious: Yes (Other)
  Sender: FDA-Public Use
  Company Number: IND-CA-009507513-1903CAN005002

PATIENT
  Age: 73 Year
  Sex: Female

DRUGS (15)
  1. FERROUS SULFATE. [Concomitant]
     Active Substance: FERROUS SULFATE
     Indication: PRODUCT USED FOR UNKNOWN INDICATION
     Route: 065
  2. ROSUVASTATIN. [Concomitant]
     Active Substance: ROSUVASTATIN
     Indication: PRODUCT USED FOR UNKNOWN INDICATION
     Dosage: UNK
     Route: 065
  3. ROCURONIUM BROMIDE. [Suspect]
     Active Substance: ROCURONIUM BROMIDE
     Dosage: 100 MILLIGRAM
     Route: 042
  4. VITAMIN D [Concomitant]
     Active Substance: CHOLECALCIFEROL
     Indication: PRODUCT USED FOR UNKNOWN INDICATION
     Dosage: UNK
     Route: 065
  5. CALCIUM (UNSPECIFIED) [Concomitant]
     Active Substance: CALCIUM
     Indication: PRODUCT USED FOR UNKNOWN INDICATION
     Dosage: UNK
     Route: 065
  6. SUFENTANIL CITRATE. [Suspect]
     Active Substance: SUFENTANIL CITRATE
     Dosage: 25 MICROGRAM
     Route: 042
  7. ASPIRIN. [Concomitant]
     Active Substance: ASPIRIN
     Indication: PRODUCT USED FOR UNKNOWN INDICATION
     Dosage: UNK
     Route: 065
  8. METOPROLOL. [Concomitant]
     Active Substance: METOPROLOL
     Indication: PRODUCT USED FOR UNKNOWN INDICATION
     Dosage: UNK
     Route: 065
  9. ROCURONIUM BROMIDE. [Suspect]
     Active Substance: ROCURONIUM BROMIDE
     Indication: ANAESTHESIA PROCEDURE
     Dosage: 50 MILLIGRAM
     Route: 042
  10. ROCURONIUM BROMIDE. [Suspect]
     Active Substance: ROCURONIUM BROMIDE
     Dosage: 50 MILLIGRAM
     Route: 042
  11. KETAMINE [Suspect]
     Active Substance: KETAMINE
     Indication: ANAESTHESIA PROCEDURE
     Dosage: 25 MILLIGRAM
     Route: 042
  12. PROPOFOL. [Suspect]
     Active Substance: PROPOFOL
     Indication: SEDATION
     Dosage: 50 MILLIGRAM
     Route: 065
  13. MIDAZOLAM [Suspect]
     Active Substance: MIDAZOLAM HYDROCHLORIDE
     Indication: ANAESTHESIA PROCEDURE
     Dosage: UNK
     Route: 042
  14. SEVOFLURANE. [Suspect]
     Active Substance: SEVOFLURANE
     Indication: ANAESTHESIA PROCEDURE
     Dosage: UNK
     Route: 065
  15. SUFENTANIL CITRATE. [Suspect]
     Active Substance: SUFENTANIL CITRATE
     Indication: ANAESTHESIA PROCEDURE
     Dosage: 0.4 GRAM
     Route: 042

REACTIONS (5)
  - Altered state of consciousness [Recovered/Resolved]
  - Unwanted awareness during anaesthesia [Recovered/Resolved]
  - Drug ineffective [Recovered/Resolved]
  - Paralysis [Recovered/Resolved]
  - Hypomagnesaemia [Recovered/Resolved]
